FAERS Safety Report 5131323-9 (Version None)
Quarter: 2006Q4

REPORT INFORMATION
  Report Type: 
  Country: None (occurrence: None)
  Receive Date: 20061020
  Receipt Date: 20061011
  Transmission Date: 20070319
  Serious: Yes (Hospitalization)
  Sender: FDA-Public Use
  Company Number: PHEH2006US12754

PATIENT
  Age: 65 Year
  Sex: Female

DRUGS (2)
  1. ZETIA [Concomitant]
  2. LESCOL [Suspect]
     Indication: HYPERLIPIDAEMIA
     Dosage: 20 MG, QD
     Dates: start: 20020101, end: 20050801

REACTIONS (1)
  - VASCULAR BYPASS GRAFT [None]
